FAERS Safety Report 9170550 (Version 2)
Quarter: 2013Q2

REPORT INFORMATION
  Report Type: Spontaneous
  Country: US (occurrence: None)
  Receive Date: 20130308
  Receipt Date: 20130529
  Transmission Date: 20140414
  Serious: Yes (Other)
  Sender: FDA-Public Use
  Company Number: JPI-P-030154

PATIENT
  Age: 17 Year
  Sex: Male
  Weight: 97.52 kg

DRUGS (2)
  1. XYREM(500 MILLIGRAM/MILLILITERS, SOLUTION)(SODIUM OXYBATE) [Suspect]
     Indication: CATAPLEXY
     Route: 048
     Dates: start: 20120730
  2. MODAFINIL [Concomitant]

REACTIONS (4)
  - Somnolence [None]
  - Irritability [None]
  - Aggression [None]
  - Anger [None]
